FAERS Safety Report 13428146 (Version 13)
Quarter: 2017Q4

REPORT INFORMATION
  Report Type: Report from Study
  Country: US (occurrence: US)
  Receive Date: 20170411
  Receipt Date: 20171121
  Transmission Date: 20180320
  Serious: Yes (Hospitalization)
  Sender: FDA-Public Use
  Company Number: US-ACTELION-A-US2017-150494

PATIENT
  Age: 72 Year
  Sex: Female
  Weight: 80.27 kg

DRUGS (6)
  1. WARFARIN [Concomitant]
     Active Substance: WARFARIN
  2. SILDENAFIL CITRATE. [Concomitant]
     Active Substance: SILDENAFIL CITRATE
     Dosage: 40 MG, UNK
  3. OPSUMIT [Suspect]
     Active Substance: MACITENTAN
     Indication: PULMONARY ARTERIAL HYPERTENSION
     Dosage: 10 MG, QD
     Route: 048
  4. AMLODIPINE [Concomitant]
     Active Substance: AMLODIPINE BESYLATE
  5. OPSUMIT [Suspect]
     Active Substance: MACITENTAN
     Dosage: 10 MG, QD
     Route: 048
  6. ORENITRAM [Suspect]
     Active Substance: TREPROSTINIL
     Indication: PRODUCT USED FOR UNKNOWN INDICATION
     Dosage: 1 MG, TID
     Route: 065
     Dates: start: 201703

REACTIONS (25)
  - Pulmonary arterial pressure increased [Unknown]
  - Weight increased [Unknown]
  - Insomnia [Unknown]
  - Dyspnoea [Unknown]
  - Gait disturbance [Unknown]
  - Chills [Unknown]
  - Headache [Unknown]
  - Hypokalaemia [Unknown]
  - Abdominal discomfort [Unknown]
  - Myalgia [Unknown]
  - Back pain [Unknown]
  - Nausea [Unknown]
  - Therapy non-responder [Unknown]
  - Tremor [Unknown]
  - Constipation [Unknown]
  - Dry eye [Unknown]
  - Visual impairment [Unknown]
  - Hypotension [Unknown]
  - Syncope [Unknown]
  - Oedema [Unknown]
  - Abdominal pain upper [Unknown]
  - Muscle spasms [Recovering/Resolving]
  - Fluid retention [Unknown]
  - Diarrhoea [Unknown]
  - Oxygen saturation decreased [Unknown]

NARRATIVE: CASE EVENT DATE: 20170328
